FAERS Safety Report 16640920 (Version 4)
Quarter: 2020Q3

REPORT INFORMATION
  Report Type: Spontaneous
  Country: JP (occurrence: JP)
  Receive Date: 20190729
  Receipt Date: 20200907
  Transmission Date: 20201102
  Serious: Yes (Death, Other)
  Sender: FDA-Public Use
  Company Number: JP-ALEXION PHARMACEUTICALS INC-A201911459

PATIENT

DRUGS (6)
  1. MEROPENEM. [Concomitant]
     Active Substance: MEROPENEM
     Indication: PRODUCT USED FOR UNKNOWN INDICATION
     Dosage: 1 G, QD
     Route: 042
     Dates: start: 20190628, end: 20190711
  2. PREDONINE [Suspect]
     Active Substance: PREDNISOLONE
     Indication: ATYPICAL HAEMOLYTIC URAEMIC SYNDROME
  3. ESOMEPRAZOLE. [Concomitant]
     Active Substance: ESOMEPRAZOLE MAGNESIUM
     Indication: PRODUCT USED FOR UNKNOWN INDICATION
     Dosage: 20 MG, QD
     Route: 048
     Dates: start: 20190619, end: 20190723
  4. SOLIRIS [Suspect]
     Active Substance: ECULIZUMAB
     Indication: ATYPICAL HAEMOLYTIC URAEMIC SYNDROME
     Dosage: 900 MG, QW
     Route: 042
     Dates: start: 20190628, end: 20190719
  5. METHYLPREDNISOLONE SODIUM SUCCINATE. [Suspect]
     Active Substance: METHYLPREDNISOLONE SODIUM SUCCINATE
     Indication: THROMBOTIC MICROANGIOPATHY
     Dosage: 500 MG, QD
     Route: 042
     Dates: start: 20190619, end: 20190621
  6. PREDONINE [Suspect]
     Active Substance: PREDNISOLONE
     Indication: THROMBOTIC MICROANGIOPATHY
     Dosage: 50?20 MG, QD
     Route: 048
     Dates: start: 20190622, end: 20190723

REACTIONS (1)
  - Enterococcal sepsis [Fatal]

NARRATIVE: CASE EVENT DATE: 20190715
